FAERS Safety Report 18797465 (Version 1)
Quarter: 2021Q1

REPORT INFORMATION
  Report Type: Spontaneous
  Country: US (occurrence: US)
  Receive Date: 20210128
  Receipt Date: 20210128
  Transmission Date: 20210419
  Serious: No
  Sender: FDA-Public Use
  Company Number: US-SA-2021SA021208

PATIENT
  Age: 22 Year
  Sex: Female

DRUGS (2)
  1. TETANUS TOXOID [Suspect]
     Active Substance: TETANUS TOXOIDS
     Indication: IMMUNISATION
     Route: 065
  2. TUBERSOL [Suspect]
     Active Substance: TUBERCULIN PURIFIED PROTEIN DERIVATIVE
     Indication: TUBERCULIN TEST
     Dosage: 0.5 ML, TOTAL
     Route: 030

REACTIONS (1)
  - Wrong product administered [Unknown]
